FAERS Safety Report 8409085-9 (Version None)
Quarter: 2012Q2

REPORT INFORMATION
  Report Type: 
  Country: None (occurrence: None)
  Receive Date: 20120604
  Receipt Date: 20120529
  Transmission Date: 20120825
  Serious: Yes (Other)
  Sender: FDA-Public Use
  Company Number: GR-ABBOTT-12P-066-0941336-00

PATIENT
  Age: 22 Year
  Sex: Female

DRUGS (8)
  1. RISPERIDONE [Suspect]
     Indication: PRODUCT USED FOR UNKNOWN INDICATION
  2. PREGABALIN [Concomitant]
     Indication: ANXIETY
  3. ARIPIPRAZOLE [Concomitant]
     Indication: PRODUCT USED FOR UNKNOWN INDICATION
  4. PALIPERIDONE [Concomitant]
     Indication: PRODUCT USED FOR UNKNOWN INDICATION
  5. DIAZEPAM [Suspect]
     Indication: PRODUCT USED FOR UNKNOWN INDICATION
     Route: 065
  6. BIPERIDEN HYDROCHLORIDE TAB [Suspect]
  7. PALIPERIDONE [Concomitant]
  8. BIPERIDEN HYDROCHLORIDE TAB [Suspect]
     Indication: EXTRAPYRAMIDAL DISORDER
     Route: 065

REACTIONS (4)
  - TOURETTE'S DISORDER [None]
  - SOMNOLENCE [None]
  - FATIGUE [None]
  - DYSPHAGIA [None]
